FAERS Safety Report 4478675-0 (Version None)
Quarter: 2004Q4

REPORT INFORMATION
  Report Type: 
  Country: None (occurrence: None)
  Receive Date: 20040923
  Receipt Date: 20040610
  Transmission Date: 20050328
  Serious: No
  Sender: FDA-Public Use
  Company Number: USA040669158

PATIENT
  Age: 77 Year
  Sex: Female

DRUGS (5)
  1. FORTEO [Suspect]
     Indication: OSTEOPOROSIS
     Dates: start: 20030101
  2. CARBIDOPA AND LEVODOPA [Concomitant]
  3. XANAX [Concomitant]
  4. SYNTHROID [Concomitant]
  5. ATENOLOL [Concomitant]

REACTIONS (2)
  - HOT FLUSH [None]
  - PAIN [None]
